FAERS Safety Report 8152018-3 (Version None)
Quarter: 2012Q1

REPORT INFORMATION
  Report Type: 
  Country: None (occurrence: None)
  Receive Date: 20120214
  Receipt Date: 20120202
  Transmission Date: 20120608
  Serious: Yes (Death)
  Sender: FDA-Public Use
  Company Number: 1000024072

PATIENT
  Age: 85 Year
  Sex: Female

DRUGS (7)
  1. DEPAKOTE [Concomitant]
  2. EQUANIL [Concomitant]
  3. FORLAX(MACROGOL) (MACROGOL) [Concomitant]
  4. MEMANTINE HYDROCHLORIDE [Suspect]
     Indication: COGNITIVE DISORDER
     Dosage: 20 MG (20 MG, 1 IN 1 D), ORAL
     Route: 048
     Dates: start: 20090916, end: 20110701
  5. MEMANTINE HYDROCHLORIDE [Suspect]
     Indication: ABNORMAL BEHAVIOUR
     Dosage: 20 MG (20 MG, 1 IN 1 D), ORAL
     Route: 048
     Dates: start: 20090916, end: 20110701
  6. KARDEGIC(ACETYLSALICYLATE LYSINE) ( ACETYLSALICYLATE LYSINE) [Concomitant]
  7. TARDYFERON B9(FOLIC ACID ANHYDROUS, IRON (FERROUS SULFATE SESQUIHYDRAT [Concomitant]

REACTIONS (9)
  - CONDITION AGGRAVATED [None]
  - RED BLOOD CELL SEDIMENTATION RATE DECREASED [None]
  - DIZZINESS [None]
  - COGNITIVE DISORDER [None]
  - VERTIGO [None]
  - PULMONARY EMBOLISM [None]
  - WEIGHT DECREASED [None]
  - SOMNOLENCE [None]
  - FALL [None]
